FAERS Safety Report 23457527 (Version 2)
Quarter: 2024Q2

REPORT INFORMATION
  Report Type: Spontaneous
  Country: US (occurrence: US)
  Receive Date: 20240130
  Receipt Date: 20240528
  Transmission Date: 20240716
  Serious: No
  Sender: FDA-Public Use
  Company Number: US-SA-SAC20240123000308

PATIENT
  Sex: Female
  Weight: 48.53 kg

DRUGS (7)
  1. DUPIXENT [Suspect]
     Active Substance: DUPILUMAB
     Indication: Dermatitis atopic
     Dosage: 600 MG, 1X
     Route: 058
  2. DUPIXENT [Suspect]
     Active Substance: DUPILUMAB
     Dosage: 300 MG, QOW
     Route: 058
  3. VITAMIN D3 [Concomitant]
     Active Substance: CHOLECALCIFEROL
  4. HYDROQUINONE [Concomitant]
     Active Substance: HYDROQUINONE
  5. ALUMINUM CHLORIDE [Concomitant]
     Active Substance: ALUMINUM CHLORIDE
  6. TOFACITINIB CITRATE [Concomitant]
     Active Substance: TOFACITINIB CITRATE
  7. DICYCLOMINE HYDROCHLORIDE [Concomitant]
     Active Substance: DICYCLOMINE HYDROCHLORIDE

REACTIONS (3)
  - Headache [Unknown]
  - Injection site pruritus [Unknown]
  - Injection site erythema [Unknown]
